FAERS Safety Report 21962877 (Version 1)
Quarter: 2023Q1

REPORT INFORMATION
  Report Type: Spontaneous
  Country: US (occurrence: US)
  Receive Date: 20230207
  Receipt Date: 20230207
  Transmission Date: 20230417
  Serious: Yes (Life-Threatening, Hospitalization, Other)
  Sender: FDA-Public Use
  Company Number: US-PFIZER INC-PV202300020876

PATIENT
  Age: 51 Year
  Sex: Female

DRUGS (7)
  1. METHOTREXATE [Suspect]
     Active Substance: METHOTREXATE
     Indication: Acute febrile neutrophilic dermatosis
     Dosage: UNK
  2. DAPSONE [Suspect]
     Active Substance: DAPSONE
     Indication: Acute febrile neutrophilic dermatosis
     Dosage: UNK
  3. POTASSIUM IODIDE [Suspect]
     Active Substance: POTASSIUM IODIDE
     Indication: Acute febrile neutrophilic dermatosis
     Dosage: UNK
  4. COLCHICINE [Suspect]
     Active Substance: COLCHICINE
     Indication: Acute febrile neutrophilic dermatosis
     Dosage: UNK
  5. HYDROXYCHLOROQUINE [Suspect]
     Active Substance: HYDROXYCHLOROQUINE
     Indication: Acute febrile neutrophilic dermatosis
     Dosage: UNK
  6. SULFAPYRIDINE [Suspect]
     Active Substance: SULFAPYRIDINE
     Indication: Acute febrile neutrophilic dermatosis
     Dosage: UNK
  7. PREDNISONE [Concomitant]
     Active Substance: PREDNISONE
     Indication: Acute febrile neutrophilic dermatosis
     Dosage: UNK

REACTIONS (2)
  - Drug ineffective [Recovered/Resolved]
  - Off label use [Unknown]
